FAERS Safety Report 18906295 (Version 2)
Quarter: 2021Q1

REPORT INFORMATION
  Report Type: Spontaneous
  Country: CA (occurrence: CA)
  Receive Date: 20210217
  Receipt Date: 20210302
  Transmission Date: 20210420
  Serious: Yes (Other)
  Sender: FDA-Public Use
  Company Number: CA-AUROBINDO-AUR-APL-2021-006515

PATIENT
  Age: 42 Year
  Sex: Female

DRUGS (1)
  1. AURO?ELETRIPTAN TABLETS [Suspect]
     Active Substance: ELETRIPTAN
     Indication: MIGRAINE
     Dosage: UNK (10 AS REQUIRED)
     Route: 048

REACTIONS (6)
  - Product substitution issue [Recovered/Resolved]
  - Asthenia [Recovered/Resolved]
  - Sudden onset of sleep [Recovered/Resolved]
  - Affect lability [Recovered/Resolved]
  - Dizziness [Recovered/Resolved]
  - Sedation [Recovered/Resolved]
